FAERS Safety Report 7749412-9 (Version None)
Quarter: 2011Q3

REPORT INFORMATION
  Report Type: 
  Country: None (occurrence: None)
  Receive Date: 20110914
  Receipt Date: 20110907
  Transmission Date: 20111222
  Serious: Yes (Other)
  Sender: FDA-Public Use
  Company Number: CA-PFIZER INC-2011203169

PATIENT
  Age: 89 Year
  Sex: Female

DRUGS (11)
  1. NOVO-GESIC [Concomitant]
     Indication: ANALGESIC THERAPY
     Dosage: 2 TABLETS
     Route: 048
  2. APO-AMOXI [Concomitant]
     Indication: INFECTION
     Dosage: 500 MG, 4 CAPSULE 1 HOUR BEFORE DENTAL APPOINTMENT
  3. ARTHROTEC [Concomitant]
     Indication: OSTEOARTHRITIS
     Dosage: 75 MG/200, 1X/DAY
     Route: 048
  4. VITALUX [Concomitant]
     Indication: MACULAR DEGENERATION
     Dosage: 2 TABLETS, 2X/DAY
  5. PANTOLOC ^NYCOMED^ [Concomitant]
     Indication: ABDOMINAL DISCOMFORT
     Dosage: 40 MG, 1X/DAY
     Route: 048
  6. AVALIDE [Concomitant]
     Indication: HYPERTENSION
     Dosage: 150/12.5 MG, 1X/DAY
     Route: 048
  7. XALATAN [Suspect]
     Indication: GLAUCOMA
     Dosage: 1 GTT, 1X/DAY
     Route: 047
  8. EFFEXOR [Concomitant]
     Indication: ANTIDEPRESSANT THERAPY
     Dosage: 37 MG, 1X/DAY
     Route: 048
  9. FERROUS SULFATE [Concomitant]
     Indication: IRON DEFICIENCY ANAEMIA
     Dosage: 300 MG, 1X/DAY
     Route: 048
  10. XALATAN [Suspect]
     Dosage: 1 GTT IN RIGHT EYE, 1X/DAY
     Route: 047
     Dates: start: 20110509
  11. SYNTHROID [Concomitant]
     Indication: THYROID HORMONE REPLACEMENT THERAPY
     Dosage: 75 MG, 1X/DAY
     Route: 048

REACTIONS (3)
  - BLINDNESS UNILATERAL [None]
  - GLAUCOMA SURGERY [None]
  - CATARACT OPERATION [None]
